FAERS Safety Report 5265860-3 (Version None)
Quarter: 2007Q1

REPORT INFORMATION
  Report Type: 
  Country: None (occurrence: None)
  Receive Date: 20070312
  Receipt Date: 20070312
  Transmission Date: 20070707
  Serious: Yes (Life-Threatening, Hospitalization)
  Sender: FDA-Public Use
  Company Number: None

PATIENT
  Sex: Female
  Weight: 72.5755 kg

DRUGS (1)
  1. AMBIEN [Suspect]
     Indication: INSOMNIA
     Dosage: 1 PILL NIGHTLY
     Dates: start: 20060301, end: 20070302

REACTIONS (6)
  - ABNORMAL SLEEP-RELATED EVENT [None]
  - AMNESIA [None]
  - CONFUSIONAL STATE [None]
  - IMPAIRED DRIVING ABILITY [None]
  - INJURY [None]
  - ROAD TRAFFIC ACCIDENT [None]
